FAERS Safety Report 18903076 (Version 1)
Quarter: 2021Q1

REPORT INFORMATION
  Report Type: Spontaneous
  Country: US (occurrence: US)
  Receive Date: 20210216
  Receipt Date: 20210216
  Transmission Date: 20210420
  Serious: No
  Sender: FDA-Public Use
  Company Number: None

PATIENT
  Age: 28 Year
  Sex: Female
  Weight: 112.5 kg

DRUGS (8)
  1. AMBIEN [Concomitant]
     Active Substance: ZOLPIDEM TARTRATE
  2. VITAMIN D [Concomitant]
     Active Substance: VITAMIN D NOS
  3. LEXAPRO [Concomitant]
     Active Substance: ESCITALOPRAM OXALATE
  4. ADDERALL [Concomitant]
     Active Substance: AMPHETAMINE ASPARTATE\AMPHETAMINE SULFATE\DEXTROAMPHETAMINE SACCHARATE\DEXTROAMPHETAMINE SULFATE
  5. BIOTIN [Concomitant]
     Active Substance: BIOTIN
  6. CENTRUM [Concomitant]
     Active Substance: VITAMINS
  7. DEXTROAMPHET SACCHARAT, AMPHET ASPARTATE, DEXTROAMPHET SULFATE AND AMPHET SULFAT [Suspect]
     Active Substance: AMPHETAMINE ASPARTATE\AMPHETAMINE SULFATE\DEXTROAMPHETAMINE SACCHARATE\DEXTROAMPHETAMINE SULFATE
     Indication: ATTENTION DEFICIT HYPERACTIVITY DISORDER
     Dosage: ?          QUANTITY:1 TABLET(S);?
     Route: 048
     Dates: start: 20210213, end: 20210215
  8. LAMICTOL [Concomitant]

REACTIONS (8)
  - Headache [None]
  - Product quality issue [None]
  - Migraine [None]
  - Feeling abnormal [None]
  - Condition aggravated [None]
  - Drug ineffective [None]
  - Fatigue [None]
  - Irritability [None]

NARRATIVE: CASE EVENT DATE: 20210215
